FAERS Safety Report 25672965 (Version 1)
Quarter: 2025Q3

REPORT INFORMATION
  Report Type: Report from Study
  Country: CA (occurrence: CA)
  Receive Date: 20250812
  Receipt Date: 20250812
  Transmission Date: 20251020
  Serious: Yes (Other)
  Sender: ABBVIE
  Company Number: CA-ABBVIE-6410499

PATIENT
  Age: 76 Year
  Sex: Male

DRUGS (2)
  1. SKYRIZI [Suspect]
     Active Substance: RISANKIZUMAB-RZAA
     Indication: Crohn^s disease
     Route: 058
  2. PREDNISONE [Concomitant]
     Active Substance: PREDNISONE
     Indication: Product used for unknown indication

REACTIONS (9)
  - Gastrointestinal surgery [Unknown]
  - Muscle spasms [Unknown]
  - Abdominal distension [Unknown]
  - Arthralgia [Not Recovered/Not Resolved]
  - Oesophageal stenosis [Unknown]
  - Dysphagia [Unknown]
  - Weight decreased [Unknown]
  - Crohn^s disease [Unknown]
  - Scar [Unknown]

NARRATIVE: CASE EVENT DATE: 20250806
